FAERS Safety Report 5351208-2 (Version None)
Quarter: 2007Q2

REPORT INFORMATION
  Report Type: 
  Country: None (occurrence: None)
  Receive Date: 20070608
  Receipt Date: 20070529
  Transmission Date: 20071010
  Serious: Yes (Hospitalization)
  Sender: FDA-Public Use
  Company Number: DE-PFIZER INC-2007043372

PATIENT
  Age: 71 Year

DRUGS (11)
  1. LINEZOLID [Suspect]
  2. RIFAMPICIN [Concomitant]
  3. OMEPRAZOLE MAGNESIUM [Concomitant]
  4. RAMIPRIL [Concomitant]
  5. HYDROCHLOROTHIAZIDE [Concomitant]
  6. TORSEMIDE [Concomitant]
  7. METOPROLOL SUCCINATE [Concomitant]
  8. IODINE [Concomitant]
  9. NADROPARIN CALCIUM [Concomitant]
  10. METAMIZOLE [Concomitant]
  11. ALLOPURINOL [Concomitant]

REACTIONS (1)
  - REVERSIBLE POSTERIOR LEUKOENCEPHALOPATHY SYNDROME [None]
